FAERS Safety Report 5249242-6 (Version None)
Quarter: 2007Q1

REPORT INFORMATION
  Report Type: 
  Country: None (occurrence: None)
  Receive Date: 20070228
  Receipt Date: 20070213
  Transmission Date: 20070707
  Serious: Yes (Hospitalization)
  Sender: FDA-Public Use
  Company Number: FR-JNJFOC-20070205598

PATIENT
  Age: 38 Year
  Sex: Male

DRUGS (4)
  1. TRAMADOL HCL [Suspect]
     Indication: DRUG USE FOR UNKNOWN INDICATION
     Route: 065
  2. KETEK [Suspect]
     Indication: SINUSITIS
     Route: 048
  3. COLCHIMAX [Suspect]
     Indication: DRUG USE FOR UNKNOWN INDICATION
     Route: 048
  4. NSAID'S [Concomitant]
     Route: 065

REACTIONS (7)
  - ABDOMINAL PAIN [None]
  - CHILLS [None]
  - HEPATITIS [None]
  - HEPATOCELLULAR DAMAGE [None]
  - NAUSEA [None]
  - PYREXIA [None]
  - VOMITING [None]
